FAERS Safety Report 9620358 (Version 1)
Quarter: 2013Q4

REPORT INFORMATION
  Report Type: Spontaneous
  Country: US (occurrence: US)
  Receive Date: 20131014
  Receipt Date: 20131014
  Transmission Date: 20140711
  Serious: Yes (Other)
  Sender: FDA-Public Use
  Company Number: US-AMGEN-USASP2013071586

PATIENT
  Age: 70 Year
  Sex: Male
  Weight: 108.84 kg

DRUGS (1)
  1. ENBREL [Suspect]
     Indication: POLYCHONDRITIS
     Dosage: 50 MG, QWK
     Route: 058

REACTIONS (1)
  - Skin cancer [Unknown]
